FAERS Safety Report 23702099 (Version 1)
Quarter: 2024Q2

REPORT INFORMATION
  Report Type: Spontaneous
  Country: RU (occurrence: RU)
  Receive Date: 20240403
  Receipt Date: 20240403
  Transmission Date: 20240715
  Serious: Yes (Other)
  Sender: FDA-Public Use
  Company Number: RU-BAYER-2024A048603

PATIENT
  Sex: Female

DRUGS (1)
  1. XARELTO [Suspect]
     Active Substance: RIVAROXABAN
     Indication: Myocardial ischaemia
     Dosage: 2.5 MG, BID
     Route: 048
     Dates: start: 20240328, end: 20240329

REACTIONS (2)
  - Diplegia [Unknown]
  - Pruritus [Unknown]
